FAERS Safety Report 9070800 (Version 1)
Quarter: 2013Q1

REPORT INFORMATION
  Report Type: Spontaneous
  Country: US (occurrence: US)
  Receive Date: 20130206
  Receipt Date: 20130206
  Transmission Date: 20140127
  Serious: No
  Sender: FDA-Public Use
  Company Number: US-ALLERGAN-1205689US

PATIENT
  Age: 73 Year
  Sex: Female

DRUGS (3)
  1. RESTASIS? [Suspect]
     Indication: DRY EYE
     Dosage: 2 GTT, BID
     Route: 047
  2. PRESERVISION AREDS [Concomitant]
     Indication: DRY EYE
     Route: 048
  3. PRESERVISION AREDS II [Concomitant]
     Indication: DRY EYE
     Dosage: UNK
     Route: 048

REACTIONS (11)
  - Adverse drug reaction [Recovering/Resolving]
  - Scleral discolouration [Recovering/Resolving]
  - Eye swelling [Recovered/Resolved]
  - Ocular hyperaemia [Recovered/Resolved]
  - Erythema of eyelid [Recovered/Resolved]
  - Eyelid oedema [Recovered/Resolved]
  - Eye irritation [Recovering/Resolving]
  - Eye pruritus [Recovering/Resolving]
  - Hypersensitivity [Recovering/Resolving]
  - Dry eye [Unknown]
  - Eye pain [Recovering/Resolving]
